FAERS Safety Report 4734862-5 (Version None)
Quarter: 2005Q3

REPORT INFORMATION
  Report Type: 
  Country: None (occurrence: None)
  Receive Date: 20050729
  Receipt Date: 20050719
  Transmission Date: 20060218
  Serious: Yes (Other)
  Sender: FDA-Public Use
  Company Number: 2005093519

PATIENT
  Age: 38 Year
  Sex: Male
  Weight: 79.3795 kg

DRUGS (3)
  1. ZANTAC 75 [Suspect]
     Indication: GASTROOESOPHAGEAL REFLUX DISEASE
     Dosage: 1 TAB 3 TIMES, ORAL
     Route: 048
     Dates: start: 20050626, end: 20050627
  2. BENADRYL [Suspect]
     Indication: URTICARIA
     Dosage: 1 ULTRATAB 3 TIMES, ORAL
     Route: 048
     Dates: start: 20050601
  3. ESOMEPRAZOLE              (ESOMEPRAZOLE) [Concomitant]

REACTIONS (6)
  - DRUG INEFFECTIVE [None]
  - DYSPNOEA [None]
  - PRURITUS [None]
  - RASH [None]
  - THROAT TIGHTNESS [None]
  - URTICARIA GENERALISED [None]
